FAERS Safety Report 24062348 (Version 1)
Quarter: 2024Q3

REPORT INFORMATION
  Report Type: Report from Study
  Country: US (occurrence: US)
  Receive Date: 20240708
  Receipt Date: 20240708
  Transmission Date: 20241017
  Serious: Yes (Disabling)
  Sender: BAUSCH AND LOMB
  Company Number: US-BAUSCHBL-2024BNL029690

PATIENT
  Age: 62 Year
  Sex: Female
  Weight: 62.6 kg

DRUGS (1)
  1. XIIDRA [Suspect]
     Active Substance: LIFITEGRAST
     Indication: Dry eye
     Route: 047
     Dates: start: 201802

REACTIONS (1)
  - Disability [Not Recovered/Not Resolved]
